FAERS Safety Report 6231965 (Version 3)
Quarter: 2020Q3

REPORT INFORMATION
  Report Type: Spontaneous
  Country: CH (occurrence: CH)
  Receive Date: 20070206
  Receipt Date: 20070427
  Transmission Date: 20201105
  Serious: Yes (Hospitalization)
  Sender: FDA-Public Use
  Company Number: CH-ROCHE-436245

PATIENT
  Age: 55 Year
  Sex: Female

DRUGS (1)
  1. IBANDRONIC ACID. [Suspect]
     Active Substance: IBANDRONIC ACID
     Indication: OSTEOPOROSIS
     Route: 048
     Dates: start: 20060201, end: 20060201

REACTIONS (3)
  - Pain in jaw [Recovering/Resolving]
  - Bone pain [None]
  - Complications of transplant surgery [None]

NARRATIVE: CASE EVENT DATE: 20060101
